APPROVED DRUG PRODUCT: MICRONASE
Active Ingredient: GLYBURIDE
Strength: 2.5MG
Dosage Form/Route: TABLET;ORAL
Application: N017498 | Product #002
Applicant: PFIZER INC
Approved: May 1, 1984 | RLD: No | RS: No | Type: DISCN